FAERS Safety Report 6566506-4 (Version None)
Quarter: 2010Q1

REPORT INFORMATION
  Report Type: 
  Country: None (occurrence: None)
  Receive Date: 20100202
  Receipt Date: 20081201
  Transmission Date: 20100710
  Serious: Yes (Other)
  Sender: FDA-Public Use
  Company Number: PHEH2008US11793

PATIENT
  Sex: Female
  Weight: 60.771 kg

DRUGS (1)
  1. EXJADE [Suspect]
     Dosage: 1500 MG, QD
     Route: 048
     Dates: start: 20081119, end: 20081126

REACTIONS (8)
  - BALANCE DISORDER [None]
  - CYSTITIS [None]
  - DIARRHOEA [None]
  - DIZZINESS [None]
  - FALL [None]
  - GAIT DISTURBANCE [None]
  - HEAD INJURY [None]
  - JOINT INJURY [None]
